FAERS Safety Report 13297291 (Version 1)
Quarter: 2017Q1

REPORT INFORMATION
  Report Type: Spontaneous
  Country: US (occurrence: US)
  Receive Date: 20170304
  Receipt Date: 20170304
  Transmission Date: 20170428
  Serious: Yes (Life-Threatening, Hospitalization, Other)
  Sender: FDA-Public Use
  Company Number: None

PATIENT
  Age: 92 Year
  Sex: Female
  Weight: 65.25 kg

DRUGS (3)
  1. VITAMIN D [Concomitant]
     Active Substance: CHOLECALCIFEROL
  2. LEVAQUIN [Suspect]
     Active Substance: LEVOFLOXACIN
     Indication: PNEUMONIA
     Dates: start: 20170219, end: 20170219
  3. PRESERVISION [Concomitant]
     Active Substance: MINERALS\VITAMINS

REACTIONS (15)
  - Blood pressure decreased [None]
  - Haemorrhoids [None]
  - Pain [None]
  - Blindness [None]
  - Dizziness [None]
  - Dehydration [None]
  - Confusional state [None]
  - Nausea [None]
  - Seizure [None]
  - Diarrhoea [None]
  - Pain in extremity [None]
  - Heart rate decreased [None]
  - Vomiting [None]
  - Gastrointestinal pain [None]
  - Colitis ischaemic [None]

NARRATIVE: CASE EVENT DATE: 20170219
